FAERS Safety Report 6215502-5 (Version None)
Quarter: 2009Q2

REPORT INFORMATION
  Report Type: 
  Country: None (occurrence: None)
  Receive Date: 20090603
  Receipt Date: 20090518
  Transmission Date: 20091009
  Serious: Yes (Death)
  Sender: FDA-Public Use
  Company Number: DSA_33725_2009

PATIENT
  Sex: Female

DRUGS (2)
  1. TILAZEM (TILAZEM ^ELAN^ - DILTIAZEM HYDROCHLORIDE) (NOT SPECIFIED) [Suspect]
     Indication: HYPERTENSION
     Dosage: (DF)
  2. LYRICA [Suspect]
     Indication: FIBROMYALGIA
     Dosage: (DF)

REACTIONS (1)
  - DEATH [None]
